FAERS Safety Report 13422211 (Version 1)
Quarter: 2017Q2

REPORT INFORMATION
  Report Type: Spontaneous
  Country: FR (occurrence: FR)
  Receive Date: 20170410
  Receipt Date: 20170410
  Transmission Date: 20170830
  Serious: Yes (Other)
  Sender: FDA-Public Use
  Company Number: FR-BIOGEN-2017BI00383877

PATIENT
  Age: 37 Year
  Sex: Female

DRUGS (1)
  1. PLEGRIDY [Suspect]
     Active Substance: PEGINTERFERON BETA-1A
     Indication: MULTIPLE SCLEROSIS
     Route: 058
     Dates: start: 2016, end: 201612

REACTIONS (3)
  - Injection site plaque [Recovered/Resolved]
  - Pruritus [Not Recovered/Not Resolved]
  - Mechanical urticaria [Not Recovered/Not Resolved]

NARRATIVE: CASE EVENT DATE: 201611
